FAERS Safety Report 4485201-9 (Version None)
Quarter: 2004Q4

REPORT INFORMATION
  Report Type: 
  Country: None (occurrence: None)
  Receive Date: 20041026
  Receipt Date: 20040503
  Transmission Date: 20050328
  Serious: No
  Sender: FDA-Public Use
  Company Number: US-BRISTOL-MYERS SQUIBB COMPANY-12576898

PATIENT
  Age: 45 Year
  Sex: Male
  Weight: 103 kg

DRUGS (2)
  1. GLUCOPHAGE XR [Suspect]
     Indication: DIABETES MELLITUS NON-INSULIN-DEPENDENT
     Dosage: PATIENT ON THERAPY FOR ^3 TO 4 YEARS^
     Route: 048
  2. ZOCOR [Concomitant]

REACTIONS (2)
  - BRADYARRHYTHMIA [None]
  - PALPITATIONS [None]
